FAERS Safety Report 7336383-2 (Version None)
Quarter: 2011Q1

REPORT INFORMATION
  Report Type: 
  Country: None (occurrence: None)
  Receive Date: 20110307
  Receipt Date: 20110302
  Transmission Date: 20110831
  Serious: Yes (Hospitalization, Disabling, Other)
  Sender: FDA-Public Use
  Company Number: US-PFIZER INC-2010157081

PATIENT
  Sex: Male

DRUGS (5)
  1. PRAVASTATIN [Concomitant]
     Indication: CARDIAC DISORDER
  2. PRAVASTATIN [Concomitant]
     Indication: BLOOD PRESSURE
  3. PRAVASTATIN [Concomitant]
     Indication: DEPRESSION
     Dosage: UNK
     Dates: start: 20060101
  4. PRAVASTATIN [Concomitant]
     Indication: BLOOD CHOLESTEROL
  5. CHANTIX [Suspect]
     Indication: SMOKING CESSATION THERAPY
     Dosage: UNK
     Dates: start: 20070101, end: 20080101

REACTIONS (10)
  - CONVULSION [None]
  - MENTAL DISORDER [None]
  - ABNORMAL BEHAVIOUR [None]
  - ANXIETY [None]
  - NIGHTMARE [None]
  - AGGRESSION [None]
  - SUICIDE ATTEMPT [None]
  - EMOTIONAL DISTRESS [None]
  - DEPRESSION [None]
  - IMPAIRED DRIVING ABILITY [None]
